FAERS Safety Report 5162985-8 (Version None)
Quarter: 2006Q4

REPORT INFORMATION
  Report Type: 
  Country: None (occurrence: None)
  Receive Date: 20061201
  Receipt Date: 20061101
  Transmission Date: 20070319
  Serious: Yes (Life-Threatening)
  Sender: FDA-Public Use
  Company Number: GB-ELI_LILLY_AND_COMPANY-GB200611000341

PATIENT
  Age: 38 Year
  Sex: Male
  Weight: 102 kg

DRUGS (7)
  1. FLUOXETINE [Suspect]
     Indication: ABNORMAL BEHAVIOUR
     Dosage: 40 MG, DAILY (1/D)
     Route: 048
     Dates: start: 20061006
  2. FLUOXETINE [Suspect]
     Dosage: 20 MG, DAILY (1/D)
     Route: 048
     Dates: start: 20061005, end: 20061006
  3. FLUOXETINE [Suspect]
     Dosage: 20 MG, DAILY (1/D)
     Route: 048
     Dates: start: 20061001
  4. OLANZAPINE [Concomitant]
     Indication: PSYCHOTIC DISORDER
     Dosage: 10 MG, 2/D
     Route: 048
  5. DIAZEPAM [Concomitant]
     Indication: ANXIETY
     Dosage: 5 MG, 3/D
     Route: 048
  6. EPILIM [Concomitant]
     Dosage: 1 G, 2/D
     Route: 048
  7. TEMAZEPAM [Concomitant]
     Indication: SLEEP DISORDER
     Dosage: UNK, UNKNOWN
     Route: 048

REACTIONS (6)
  - ALCOHOL POISONING [None]
  - BALANCE DISORDER [None]
  - CONFUSIONAL STATE [None]
  - DISORIENTATION [None]
  - DYSARTHRIA [None]
  - SEROTONIN SYNDROME [None]
